FAERS Safety Report 5968792-8 (Version None)
Quarter: 2008Q4

REPORT INFORMATION
  Report Type: 
  Country: None (occurrence: None)
  Receive Date: 20081125
  Receipt Date: 20081125
  Transmission Date: 20090506
  Serious: Yes (Life-Threatening, Other)
  Sender: FDA-Public Use
  Company Number: None

PATIENT
  Age: 35 Year
  Sex: Male
  Weight: 90.7194 kg

DRUGS (3)
  1. PREDNISONE TAB [Suspect]
     Indication: HYPERSENSITIVITY
     Dates: start: 20080906, end: 20080914
  2. PREDNISONE INTENSOL [Suspect]
     Indication: WHEEZING
  3. EFFEXOR [Concomitant]

REACTIONS (9)
  - ABNORMAL BEHAVIOUR [None]
  - AGGRESSION [None]
  - BLOOD PRESSURE INADEQUATELY CONTROLLED [None]
  - DIZZINESS [None]
  - IMPRISONMENT [None]
  - OEDEMA [None]
  - PSYCHOTIC DISORDER [None]
  - SINUS DISORDER [None]
  - VISUAL IMPAIRMENT [None]
